FAERS Safety Report 25235623 (Version 1)
Quarter: 2025Q2

REPORT INFORMATION
  Report Type: Spontaneous
  Country: US (occurrence: US)
  Receive Date: 20250424
  Receipt Date: 20250424
  Transmission Date: 20250716
  Serious: Yes (Hospitalization)
  Sender: SAMSUNG BIOEPIS
  Company Number: US-SAMSUNG BIOEPIS-SB-2025-14179

PATIENT
  Age: 66 Year
  Sex: Male

DRUGS (3)
  1. ADALIMUMAB [Suspect]
     Active Substance: ADALIMUMAB
     Indication: Vogt-Koyanagi-Harada disease
  2. COLCHICINE [Suspect]
     Active Substance: COLCHICINE
     Indication: Gout
  3. PREDNISONE [Concomitant]
     Active Substance: PREDNISONE
     Indication: Vogt-Koyanagi-Harada disease

REACTIONS (4)
  - Cutaneous vasculitis [Recovered/Resolved]
  - Gout [Unknown]
  - Toxicity to various agents [Unknown]
  - Off label use [Unknown]
